FAERS Safety Report 12024471 (Version 1)
Quarter: 2016Q1

REPORT INFORMATION
  Report Type: Report from Study
  Country: US (occurrence: US)
  Receive Date: 20160206
  Receipt Date: 20160206
  Transmission Date: 20160526
  Serious: No
  Sender: FDA-Public Use
  Company Number: US-ABBVIE-15K-163-1479741-00

PATIENT
  Age: 36 Year
  Sex: Male

DRUGS (3)
  1. PREDNISONE. [Suspect]
     Active Substance: PREDNISONE
     Indication: PRODUCT USED FOR UNKNOWN INDICATION
     Route: 065
  2. HUMIRA [Suspect]
     Active Substance: ADALIMUMAB
     Indication: PRODUCT USED FOR UNKNOWN INDICATION
     Route: 058
     Dates: start: 20140827
  3. PREDNISONE. [Suspect]
     Active Substance: PREDNISONE
     Dosage: TAPER DOSE
     Route: 065

REACTIONS (2)
  - Myalgia [Unknown]
  - Muscle tightness [Unknown]

NARRATIVE: CASE EVENT DATE: 20150917
